FAERS Safety Report 24863562 (Version 1)
Quarter: 2025Q1

REPORT INFORMATION
  Report Type: Spontaneous
  Country: US (occurrence: US)
  Receive Date: 20250120
  Receipt Date: 20250120
  Transmission Date: 20250408
  Serious: Yes (Death, Other)
  Sender: PFIZER
  Company Number: US-PFIZER INC-202500012190

PATIENT
  Age: 14 Year
  Sex: Female

DRUGS (4)
  1. BENZONATATE [Suspect]
     Active Substance: BENZONATATE
     Route: 048
  2. PAROXETINE [Suspect]
     Active Substance: PAROXETINE
     Route: 048
  3. ASPIRIN [Suspect]
     Active Substance: ASPIRIN
     Route: 048
  4. AMOXICILLIN [Suspect]
     Active Substance: AMOXICILLIN
     Route: 048

REACTIONS (3)
  - Completed suicide [Fatal]
  - Cardiac arrest [Fatal]
  - Respiratory arrest [Fatal]

NARRATIVE: CASE EVENT DATE: 20230101
